FAERS Safety Report 13842173 (Version 3)
Quarter: 2017Q4

REPORT INFORMATION
  Report Type: Spontaneous
  Country: RU (occurrence: RU)
  Receive Date: 20170807
  Receipt Date: 20171225
  Transmission Date: 20180320
  Serious: Yes (Hospitalization)
  Sender: FDA-Public Use
  Company Number: RU-ASTRAZENECA-2017SE79751

PATIENT
  Age: 79 Year
  Sex: Male
  Weight: 82 kg

DRUGS (2)
  1. BRILINTA [Suspect]
     Active Substance: TICAGRELOR
     Indication: ANGINA UNSTABLE
     Route: 048
     Dates: start: 201706, end: 20170725
  2. BRILINTA [Suspect]
     Active Substance: TICAGRELOR
     Indication: ANGINA UNSTABLE
     Route: 048

REACTIONS (2)
  - Tinnitus [Not Recovered/Not Resolved]
  - Dizziness [Not Recovered/Not Resolved]

NARRATIVE: CASE EVENT DATE: 20170725
